FAERS Safety Report 8901906 (Version 1)
Quarter: 2012Q4

REPORT INFORMATION
  Report Type: Spontaneous
  Country: US (occurrence: None)
  Receive Date: 20121109
  Receipt Date: 20121109
  Transmission Date: 20130627
  Serious: Yes (Life-Threatening)
  Sender: FDA-Public Use
  Company Number: None

PATIENT
  Age: 62 Year
  Sex: Male
  Weight: 110 kg

DRUGS (1)
  1. CAPTOPRIL [Suspect]
     Indication: CONGESTIVE HEART FAILURE
     Dosage: 25 MG ONCE PO
     Route: 048
     Dates: start: 20120824, end: 20120825

REACTIONS (1)
  - Angioedema [None]
